FAERS Safety Report 6377135-X (Version None)
Quarter: 2009Q3

REPORT INFORMATION
  Report Type: 
  Country: None (occurrence: None)
  Receive Date: 20090925
  Receipt Date: 20090914
  Transmission Date: 20100115
  Serious: Yes (Life-Threatening, Hospitalization, Other)
  Sender: FDA-Public Use
  Company Number: US-PFIZER INC-2008074167

PATIENT
  Sex: Male
  Weight: 115 kg

DRUGS (10)
  1. CHANTIX [Suspect]
     Indication: TOBACCO ABUSE
     Dosage: 1 MG, 2X/DAY
     Route: 048
     Dates: start: 20070608, end: 20071128
  2. LISINOPRIL [Interacting]
     Indication: HYPERTENSION
     Dosage: 20 MG, 1X/DAY
     Route: 048
     Dates: start: 20070402, end: 20070724
  3. LISINOPRIL [Interacting]
     Indication: DIABETES MELLITUS
  4. AVAPRO [Suspect]
     Indication: HYPERTENSION
     Dosage: 300 MG, 1X/DAY
     Route: 048
     Dates: start: 20070724
  5. SIMVASTATIN [Concomitant]
     Indication: BLOOD CHOLESTEROL
     Dosage: 40 MG, 1X/DAY
     Dates: start: 20070420, end: 20071128
  6. CIALIS [Concomitant]
     Dosage: 20 MG, UNK
     Dates: start: 20061213
  7. VITAMIN B COMPLEX CAP [Concomitant]
     Dosage: UNK
  8. NAPROXEN [Concomitant]
     Dosage: 500 MG, UNK
     Dates: start: 20061201
  9. ACETYLSALICYLIC ACID [Concomitant]
     Dosage: 325 MG, UNK
  10. ACETAMINOPHEN AND HYDROCODONE BITARTRATE [Concomitant]
     Dosage: 7.5/500MG
     Dates: start: 20061201

REACTIONS (12)
  - ACTIVITIES OF DAILY LIVING IMPAIRED [None]
  - ANGIOEDEMA [None]
  - BLOOD PRESSURE INCREASED [None]
  - CARPAL TUNNEL SYNDROME [None]
  - FEELING ABNORMAL [None]
  - HYPOTENSION [None]
  - IMPAIRED WORK ABILITY [None]
  - MALAISE [None]
  - RESPIRATORY DISTRESS [None]
  - SYNCOPE [None]
  - URTICARIA [None]
  - WHEEZING [None]
